FAERS Safety Report 4707197-4 (Version None)
Quarter: 2005Q3

REPORT INFORMATION
  Report Type: 
  Country: None (occurrence: None)
  Receive Date: 20050701
  Receipt Date: 20050623
  Transmission Date: 20060218
  Serious: Yes (Life-Threatening)
  Sender: FDA-Public Use
  Company Number: 2005-129738-NL

PATIENT
  Age: 78 Year
  Sex: Female

DRUGS (11)
  1. DANAPAROID SODIUM [Suspect]
     Dosage: 1500 ANTI _ XA 2250 ANTI_XA  SUBCUTANEOUS
     Route: 058
     Dates: start: 20050209, end: 20050213
  2. DANAPAROID SODIUM [Suspect]
     Dosage: 1500 ANTI _ XA 2250 ANTI_XA  SUBCUTANEOUS
     Route: 058
     Dates: start: 20050214, end: 20050219
  3. CEFEPIME HYDROCHLORIDE [Concomitant]
  4. AMIKACIN [Concomitant]
  5. NEFOPAM HYDROCHLORIDE [Concomitant]
  6. TRIMEBUTINE [Concomitant]
  7. METOCLOPRAMIDE [Concomitant]
  8. ACETAMINOPHEN [Concomitant]
  9. OMEPRAZOLE [Concomitant]
  10. NORADRENALINE [Concomitant]
  11. AMPHOTERICIN B [Concomitant]

REACTIONS (7)
  - DIALYSIS [None]
  - HAEMATOMA [None]
  - HAEMOGLOBIN DECREASED [None]
  - LUNG DISORDER [None]
  - PSEUDOMONAS INFECTION [None]
  - RENAL FAILURE [None]
  - SHOCK [None]
